FAERS Safety Report 7290950-3 (Version None)
Quarter: 2011Q1

REPORT INFORMATION
  Report Type: 
  Country: None (occurrence: None)
  Receive Date: 20110201
  Receipt Date: 20110127
  Transmission Date: 20110831
  Serious: Yes (Other)
  Sender: FDA-Public Use
  Company Number: 2010SP042548

PATIENT
  Age: 17 Year
  Sex: Male
  Weight: 55 kg

DRUGS (5)
  1. SEDIEL (TANDOSPIRONE CITRATE) [Suspect]
     Indication: DEPRESSION
     Dosage: (5 MG; QD; PO) (100 MG; ONCE; PO) (5 MG; QD; PO)
     Route: 048
     Dates: start: 20100803, end: 20100803
  2. SEDIEL (TANDOSPIRONE CITRATE) [Suspect]
     Indication: DEPRESSION
     Dosage: (5 MG; QD; PO) (100 MG; ONCE; PO) (5 MG; QD; PO)
     Route: 048
     Dates: start: 20090705
  3. NAUZELIN (DOMPERIDONE) [Suspect]
     Indication: DEPRESSION
     Dosage: 10 MG; TID; PO
     Route: 048
     Dates: start: 20090806
  4. REMERON [Suspect]
     Indication: DEPRESSION
     Dosage: (15 MG; QD; PO) (150 MG; ONCE; PO) (15 MG; QD; PO)
     Route: 048
     Dates: start: 20100803, end: 20100803
  5. REMERON [Suspect]
     Indication: DEPRESSION
     Dosage: (15 MG; QD; PO) (150 MG; ONCE; PO) (15 MG; QD; PO)
     Route: 048
     Dates: start: 20100218

REACTIONS (2)
  - IRRITABILITY [None]
  - INTENTIONAL SELF-INJURY [None]
